FAERS Safety Report 25333606 (Version 1)
Quarter: 2025Q2

REPORT INFORMATION
  Report Type: Spontaneous
  Country: FI (occurrence: FI)
  Receive Date: 20250520
  Receipt Date: 20250520
  Transmission Date: 20250717
  Serious: Yes (Hospitalization, Other)
  Sender: ABBVIE
  Company Number: FI-ABBVIE-6272435

PATIENT
  Sex: Male
  Weight: 50 kg

DRUGS (4)
  1. HUMIRA [Suspect]
     Active Substance: ADALIMUMAB
     Indication: Product used for unknown indication
     Route: 058
     Dates: start: 20121130
  2. SULFASALAZINE [Concomitant]
     Active Substance: SULFASALAZINE
     Indication: Product used for unknown indication
     Route: 048
     Dates: start: 19950101, end: 20241115
  3. LEFLUNOMIDE [Concomitant]
     Active Substance: LEFLUNOMIDE
     Indication: Product used for unknown indication
     Route: 048
     Dates: start: 20020401, end: 20180424
  4. PREDNISOLONE [Concomitant]
     Active Substance: PREDNISOLONE
     Indication: Product used for unknown indication
     Route: 048
     Dates: start: 20000904

REACTIONS (9)
  - Spinal fusion surgery [Unknown]
  - Arthrodesis [Unknown]
  - Hypertension [Unknown]
  - Secondary amyloidosis [Unknown]
  - Arthrodesis [Unknown]
  - Synovectomy [Unknown]
  - Knee arthroplasty [Unknown]
  - Nephropathy [Unknown]
  - Osteoporosis [Unknown]

NARRATIVE: CASE EVENT DATE: 20130711
